FAERS Safety Report 5341095-0 (Version None)
Quarter: 2007Q2

REPORT INFORMATION
  Report Type: 
  Country: None (occurrence: None)
  Receive Date: 20070405
  Receipt Date: 20060707
  Transmission Date: 20071010
  Serious: Yes (Life-Threatening, Hospitalization)
  Sender: FDA-Public Use
  Company Number: 2006-02739

PATIENT
  Age: 79 Year
  Sex: Male

DRUGS (9)
  1. FERRLECIT [Suspect]
     Indication: IRON DEFICIENCY ANAEMIA
     Dosage: SEE IMAGE
     Route: 042
     Dates: start: 20041213, end: 20041213
  2. FERRLECIT [Suspect]
     Indication: IRON DEFICIENCY ANAEMIA
     Dosage: SEE IMAGE
     Route: 042
     Dates: start: 20060209, end: 20060209
  3. FELODIPINE [Concomitant]
  4. METOCLOPRAMIDE [Concomitant]
  5. SUCRALFATE [Concomitant]
  6. TERAZOSIN HCL [Concomitant]
  7. METOPROLOL TARTRATE [Concomitant]
  8. OMEPRAZOLE [Concomitant]
  9. FERROUS SULFATE [Concomitant]

REACTIONS (5)
  - ANAPHYLACTIC SHOCK [None]
  - BRADYCARDIA [None]
  - DIZZINESS [None]
  - HYPOTENSION [None]
  - SYNCOPE [None]
